FAERS Safety Report 17677564 (Version 1)
Quarter: 2020Q2

REPORT INFORMATION
  Report Type: Spontaneous
  Country: US (occurrence: US)
  Receive Date: 20200416
  Receipt Date: 20200416
  Transmission Date: 20200714
  Serious: No
  Sender: FDA-Public Use
  Company Number: US-ROCHE-2493685

PATIENT
  Sex: Female
  Weight: 88.53 kg

DRUGS (10)
  1. PRILOSEC [Concomitant]
     Active Substance: OMEPRAZOLE MAGNESIUM
  2. LUPRON [Concomitant]
     Active Substance: LEUPROLIDE ACETATE
  3. LOMOTIL [Concomitant]
     Active Substance: ATROPINE SULFATE\DIPHENOXYLATE HYDROCHLORIDE
  4. LEXAPRO [Concomitant]
     Active Substance: ESCITALOPRAM OXALATE
  5. KADCYLA [Suspect]
     Active Substance: ADO-TRASTUZUMAB EMTANSINE
     Indication: BREAST CANCER
     Route: 065
  6. ATARAX [Concomitant]
     Active Substance: HYDROXYZINE HYDROCHLORIDE
  7. PROBIOTICA [Concomitant]
     Active Substance: PROBIOTICS NOS
  8. MOTRIN [Concomitant]
     Active Substance: IBUPROFEN
  9. MAXALT [Concomitant]
     Active Substance: RIZATRIPTAN BENZOATE
  10. ARIMIDEX [Concomitant]
     Active Substance: ANASTROZOLE

REACTIONS (2)
  - Myalgia [Unknown]
  - Disease progression [Unknown]
